FAERS Safety Report 15363600 (Version 3)
Quarter: 2018Q4

REPORT INFORMATION
  Report Type: Not Available
  Country: US (occurrence: US)
  Receive Date: 20180907
  Receipt Date: 20181019
  Transmission Date: 20190204
  Serious: No
  Sender: FDA-Public Use
  Company Number: US-NEUROCRINE BIOSCIENCES INC.-2018NBI02492

PATIENT
  Age: 77 Year
  Sex: Female

DRUGS (8)
  1. INGREZZA [Suspect]
     Active Substance: VALBENAZINE
     Indication: TARDIVE DYSKINESIA
     Route: 048
     Dates: start: 20180522, end: 20180528
  2. RITALIN [Concomitant]
     Active Substance: METHYLPHENIDATE HYDROCHLORIDE
     Indication: ATTENTION DEFICIT/HYPERACTIVITY DISORDER
     Route: 048
  3. ATIVAN [Concomitant]
     Active Substance: LORAZEPAM
     Indication: INSOMNIA
     Route: 048
  4. CELEXA [Concomitant]
     Active Substance: CITALOPRAM HYDROBROMIDE
     Indication: DEPRESSION
     Route: 048
  5. NEURONTIN [Concomitant]
     Active Substance: GABAPENTIN
     Indication: ANXIETY
     Route: 048
  6. TRAZODONE [Concomitant]
     Active Substance: TRAZODONE HYDROCHLORIDE
     Indication: INSOMNIA
     Route: 048
  7. INGREZZA [Suspect]
     Active Substance: VALBENAZINE
     Route: 048
     Dates: start: 20180529
  8. LEVOTHYROXINE. [Suspect]
     Active Substance: LEVOTHYROXINE
     Indication: PRODUCT USED FOR UNKNOWN INDICATION

REACTIONS (6)
  - Nausea [Not Recovered/Not Resolved]
  - Lethargy [Not Recovered/Not Resolved]
  - Dizziness [Not Recovered/Not Resolved]
  - Blood pressure systolic increased [Recovered/Resolved]
  - Asthenia [Not Recovered/Not Resolved]
  - Somnolence [Not Recovered/Not Resolved]

NARRATIVE: CASE EVENT DATE: 2018
